FAERS Safety Report 8965125 (Version 5)
Quarter: 2014Q2

REPORT INFORMATION
  Report Type: Spontaneous
  Country: US (occurrence: US)
  Receive Date: 20121214
  Receipt Date: 20140604
  Transmission Date: 20141212
  Serious: Yes (Hospitalization, Other)
  Sender: FDA-Public Use
  Company Number: US-009507513-1212USA005203

PATIENT
  Sex: Female
  Weight: 88.44 kg

DRUGS (4)
  1. FOSAMAX [Suspect]
     Indication: OSTEOPENIA
     Dosage: 70 MG, UNK
     Route: 048
     Dates: start: 200401, end: 201004
  2. ALENDRONATE SODIUM [Suspect]
     Dosage: 70 MG, UNK
     Route: 048
  3. EVISTA [Concomitant]
     Indication: OSTEOPENIA
     Dosage: UNK
     Dates: start: 200303, end: 200401
  4. EVISTA [Concomitant]
     Dosage: UNK
     Dates: start: 201004, end: 201105

REACTIONS (6)
  - Femur fracture [Recovering/Resolving]
  - Intramedullary rod insertion [Unknown]
  - Femur fracture [Unknown]
  - Uterine dilation and curettage [Unknown]
  - Haematuria [Unknown]
  - Device ineffective [Unknown]
